FAERS Safety Report 9507991 (Version 3)
Quarter: 2013Q3

REPORT INFORMATION
  Report Type: Spontaneous
  Country: JP (occurrence: JP)
  Receive Date: 20130909
  Receipt Date: 20130910
  Transmission Date: 20140515
  Serious: Yes (Hospitalization)
  Sender: FDA-Public Use
  Company Number: JP-ABBOTT-01P-087-0112646-00

PATIENT
  Age: 32 Year
  Sex: Male

DRUGS (10)
  1. NORVIR SOFT GELATIN CAPSULES [Suspect]
     Indication: HIV INFECTION
     Route: 048
     Dates: start: 19991101, end: 19991206
  2. NORVIR SOFT GELATIN CAPSULES [Suspect]
     Route: 048
     Dates: start: 19991207, end: 20010802
  3. KALETRA SOFT GELATIN CAPSULES [Suspect]
     Indication: HIV INFECTION
     Route: 048
     Dates: start: 20010803
  4. ZIDOVUDINE [Suspect]
     Indication: HIV INFECTION
     Route: 048
     Dates: start: 19991101
  5. LAMIVUDINE [Suspect]
     Indication: HIV INFECTION
     Route: 048
     Dates: start: 19991101
  6. INDINAVIR [Suspect]
     Indication: HIV INFECTION
     Route: 048
     Dates: start: 19991101, end: 19991206
  7. SAQUINAVIR [Suspect]
     Indication: HIV INFECTION
     Route: 048
     Dates: start: 19991207, end: 20001030
  8. SAQUINAVIR [Suspect]
     Route: 048
     Dates: start: 20010227, end: 20010802
  9. ASCORBIC ACID [Concomitant]
     Indication: PRODUCT USED FOR UNKNOWN INDICATION
     Dates: start: 19991101
  10. ALLOPURINOL [Concomitant]
     Indication: PRODUCT USED FOR UNKNOWN INDICATION
     Dates: start: 19991101

REACTIONS (10)
  - Calculus ureteric [Recovered/Resolved]
  - Urinary sediment present [Recovering/Resolving]
  - Blood triglycerides increased [Recovered/Resolved]
  - Blood cholesterol increased [Recovered/Resolved]
  - Proteinuria [Recovered/Resolved]
  - Pyrexia [Unknown]
  - Urinary tract infection [Unknown]
  - Red blood cells urine [Recovered/Resolved]
  - Diarrhoea [Recovering/Resolving]
  - Hepatic function abnormal [Recovered/Resolved]
